FAERS Safety Report 11024731 (Version 2)
Quarter: 2015Q2

REPORT INFORMATION
  Report Type: Report from Study
  Country: US (occurrence: None)
  Receive Date: 20150410
  Receipt Date: 20150526
  Transmission Date: 20150821
  Serious: Yes (Hospitalization, Other)
  Sender: FDA-Public Use
  Company Number: ADR-2015-00671

PATIENT
  Age: 72 Year
  Sex: Female

DRUGS (9)
  1. LIORESAL [Suspect]
     Active Substance: BACLOFEN
     Indication: MUSCLE SPASTICITY
  2. VITAMIN D (ERGOCALCIFEROL) [Concomitant]
     Active Substance: ERGOCALCIFEROL
  3. DIOVAN HCT (HYDORCHLOROTHIAZIDE, VALSARTAN) [Concomitant]
  4. METOPROLOL [Concomitant]
     Active Substance: METOPROLOL
  5. ASPIRIN (ACETYLSALICYLIC ACID) [Concomitant]
     Active Substance: ASPIRIN
  6. ZANAFLEX [Concomitant]
     Active Substance: TIZANIDINE HYDROCHLORIDE
  7. HYDRALAZINE (HYDRALAZINE HYDROCHLORIDE) [Concomitant]
  8. CADUET (AMLODIPINE BESYLATE, ATORVASTATIN CALCIUM) [Concomitant]
  9. VALIUM [Concomitant]
     Active Substance: DIAZEPAM

REACTIONS (6)
  - Hypertension [None]
  - Myocardial infarction [None]
  - Lacunar infarction [None]
  - Cerebrovascular accident [None]
  - Basilar artery stenosis [None]
  - Arteriosclerosis [None]

NARRATIVE: CASE EVENT DATE: 20150202
